FAERS Safety Report 10180398 (Version 2)
Quarter: 2014Q2

REPORT INFORMATION
  Report Type: Spontaneous
  Country: US (occurrence: US)
  Receive Date: 20140519
  Receipt Date: 20140519
  Transmission Date: 20141212
  Serious: No
  Sender: FDA-Public Use
  Company Number: US-AMGEN INC.-USASP2013082696

PATIENT
  Age: 93 Year
  Sex: Female

DRUGS (8)
  1. PROLIA [Suspect]
     Indication: OSTEOPOROSIS
     Dosage: UNK UNK, Q6MO
     Route: 065
     Dates: start: 20130915
  2. CLOPIDOGREL [Concomitant]
  3. CITALOPRAM [Concomitant]
  4. SIMVASTATIN [Concomitant]
     Dosage: 40 MG, UNK
  5. OCUVITE                            /01053801/ [Concomitant]
  6. VITAMIN D                          /00107901/ [Concomitant]
     Dosage: 2000 IU, UNK
  7. LUMIGAN [Concomitant]
  8. COMBIGAN [Concomitant]

REACTIONS (1)
  - Pain in extremity [Not Recovered/Not Resolved]
